FAERS Safety Report 17426039 (Version 1)
Quarter: 2020Q1

REPORT INFORMATION
  Report Type: Report from Study
  Country: US (occurrence: US)
  Receive Date: 20200217
  Receipt Date: 20200217
  Transmission Date: 20200409
  Serious: No
  Sender: FDA-Public Use
  Company Number: NVSC2020US040177

PATIENT
  Sex: Male

DRUGS (1)
  1. ENTRESTO [Suspect]
     Active Substance: SACUBITRIL\VALSARTAN
     Indication: PRODUCT USED FOR UNKNOWN INDICATION
     Dosage: 49 MG, BID
     Route: 048

REACTIONS (10)
  - Heart rate increased [Unknown]
  - Weight decreased [Unknown]
  - Decreased appetite [Unknown]
  - Cough [Unknown]
  - Nasopharyngitis [Unknown]
  - Productive cough [Unknown]
  - Exercise tolerance decreased [Unknown]
  - Retching [Unknown]
  - Nausea [Unknown]
  - Influenza like illness [Unknown]
